FAERS Safety Report 23875613 (Version 1)
Quarter: 2024Q2

REPORT INFORMATION
  Report Type: Report from Study
  Country: US (occurrence: US)
  Receive Date: 20240520
  Receipt Date: 20240520
  Transmission Date: 20240716
  Serious: Yes (Hospitalization)
  Sender: FDA-Public Use
  Company Number: US-RADIUS HEALTH, INC.-2022US002788

PATIENT
  Age: 42 Year
  Sex: Female
  Weight: 45 kg

DRUGS (24)
  1. TYMLOS [Suspect]
     Active Substance: ABALOPARATIDE
     Indication: Osteoporosis
     Dosage: 80 MICROGRAM, QD
     Route: 058
     Dates: start: 202206
  2. TYMLOS [Suspect]
     Active Substance: ABALOPARATIDE
     Indication: Osteogenesis imperfecta
     Dosage: TITRATE SLOWLY FROM 1 CLICK
     Route: 058
     Dates: start: 20220610
  3. TYMLOS [Suspect]
     Active Substance: ABALOPARATIDE
     Indication: Fracture
     Dosage: 4 CLICKS PER DOCTOR
     Route: 058
  4. TYMLOS [Suspect]
     Active Substance: ABALOPARATIDE
     Dosage: REDUCED TO 2 CLICKS PER DAY AND PLAN TO INCREASE BACK TO 4 CLICKS
     Route: 058
  5. TYMLOS [Suspect]
     Active Substance: ABALOPARATIDE
     Dosage: TAKING TYMLOS AS NEEDED FOR STRESS FRACTURE
     Route: 058
  6. TYMLOS [Suspect]
     Active Substance: ABALOPARATIDE
     Dosage: RESTARTED AT AN UNKNOWN DOSE
     Route: 058
     Dates: start: 202312
  7. MAGNESIUM CITRATE [Concomitant]
     Active Substance: MAGNESIUM CITRATE
     Indication: Product used for unknown indication
  8. VITAMIN C [Concomitant]
     Active Substance: ASCORBIC ACID
     Indication: Product used for unknown indication
  9. CALCIUM\VITAMIN D [Concomitant]
     Active Substance: CALCIUM\VITAMIN D
     Indication: Product used for unknown indication
     Dosage: 500MG-1000
  10. VITAMIN D NOS [Concomitant]
     Active Substance: CHOLECALCIFEROL\ERGOCALCIFEROL
     Indication: Product used for unknown indication
  11. ALPRAZOLAM [Concomitant]
     Active Substance: ALPRAZOLAM
     Indication: Product used for unknown indication
  12. CEPHALEXIN [Concomitant]
     Active Substance: CEPHALEXIN
     Indication: Product used for unknown indication
     Dosage: UNK
  13. ADACEL TDAP [Concomitant]
     Active Substance: TETANUS TOXOID, REDUCED DIPHTHERIA TOXOID AND ACELLULAR PERTUSSIS VACCINE ADSORBED, TDAP
     Indication: Product used for unknown indication
     Dosage: 2-2.5-5/.5 VIAL
  14. NALTREXONE HYDROCHLORIDE [Concomitant]
     Active Substance: NALTREXONE HYDROCHLORIDE
     Indication: Product used for unknown indication
     Dosage: UNK
  15. DROSPIRENONE AND ETHINYL ESTRADIOL [Concomitant]
     Active Substance: DROSPIRENONE\ETHINYL ESTRADIOL
     Indication: Product used for unknown indication
     Dosage: UNK
  16. DROSPIRENONE\ETHINYL ESTRADIOL\LEVOMEFOLATE CALCIUM [Concomitant]
     Active Substance: DROSPIRENONE\ETHINYL ESTRADIOL\LEVOMEFOLATE CALCIUM
     Indication: Product used for unknown indication
     Dosage: UNK
  17. PROPRANOLOL HYDROCHLORIDE [Concomitant]
     Active Substance: PROPRANOLOL HYDROCHLORIDE
     Indication: Product used for unknown indication
  18. ZINC [Concomitant]
     Active Substance: PYRITHIONE ZINC\ZINC\ZINC CHLORIDE
     Indication: Product used for unknown indication
  19. FISH OIL\OMEGA-3 FATTY ACIDS [Concomitant]
     Active Substance: FISH OIL\OMEGA-3 FATTY ACIDS
     Indication: Product used for unknown indication
  20. LUNA [MELATONIN] [Concomitant]
     Indication: Sleep disorder
  21. HERBALS\WITHANIA SOMNIFERA ROOT [Concomitant]
     Active Substance: HERBALS\WITHANIA SOMNIFERA ROOT
     Indication: Product used for unknown indication
  22. DIETARY SUPPLEMENT [Concomitant]
     Active Substance: DIETARY SUPPLEMENT
     Indication: Product used for unknown indication
  23. VITAMIN D3 [Concomitant]
     Active Substance: CHOLECALCIFEROL
     Indication: Product used for unknown indication
  24. CALCIUM CITRATE + D3 [Concomitant]
     Indication: Product used for unknown indication

REACTIONS (19)
  - Lower limb fracture [Unknown]
  - Product dose omission in error [Unknown]
  - Discomfort [Recovered/Resolved]
  - Bone disorder [Unknown]
  - Gait inability [Unknown]
  - Dyspepsia [Unknown]
  - Blood pressure increased [Unknown]
  - Palpitations [Unknown]
  - Back pain [Unknown]
  - Dizziness [Not Recovered/Not Resolved]
  - Heart rate increased [Recovered/Resolved]
  - Insomnia [Unknown]
  - Bone pain [Unknown]
  - Product administered to patient of inappropriate age [Not Recovered/Not Resolved]
  - Intentional product misuse [Not Recovered/Not Resolved]
  - Multiple use of single-use product [Unknown]
  - Product use in unapproved indication [Not Recovered/Not Resolved]
  - Expired product administered [Unknown]
  - Headache [Unknown]

NARRATIVE: CASE EVENT DATE: 20220610
